FAERS Safety Report 25767930 (Version 1)
Quarter: 2025Q3

REPORT INFORMATION
  Report Type: Spontaneous
  Country: US (occurrence: US)
  Receive Date: 20250905
  Receipt Date: 20250905
  Transmission Date: 20251021
  Serious: No
  Sender: DOMPE FARMACEUTICI
  Company Number: US-FARMAPROD-202505-1633

PATIENT
  Sex: Female

DRUGS (25)
  1. OXERVATE [Suspect]
     Active Substance: CENEGERMIN-BKBJ
     Indication: Neurotrophic keratopathy
     Route: 047
     Dates: start: 20250428
  2. OLMESARTAN MEDOXOMIL [Concomitant]
     Active Substance: OLMESARTAN MEDOXOMIL
  3. ALBUTEROL SULFATE [Concomitant]
     Active Substance: ALBUTEROL SULFATE
  4. TRADJENTA [Concomitant]
     Active Substance: LINAGLIPTIN
  5. VALACYCLOVIR [Concomitant]
     Active Substance: VALACYCLOVIR HYDROCHLORIDE
  6. PREDNISOLONE ACETATE [Concomitant]
     Active Substance: PREDNISOLONE ACETATE
  7. ATORVASTATIN CALCIUM [Concomitant]
     Active Substance: ATORVASTATIN CALCIUM
  8. LEVOCETIRIZINE DIHYDROCHLORIDE [Concomitant]
     Active Substance: LEVOCETIRIZINE DIHYDROCHLORIDE
  9. LEVOFLOXACIN [Concomitant]
     Active Substance: LEVOFLOXACIN
  10. MIRTAZAPINE [Concomitant]
     Active Substance: MIRTAZAPINE
  11. AZELASTINE HYDROCHLORIDE [Concomitant]
     Active Substance: AZELASTINE HYDROCHLORIDE
  12. LUMIFY [Concomitant]
     Active Substance: BRIMONIDINE TARTRATE
  13. CYCLOPENTOLATE HYDROCHLORIDE [Concomitant]
     Active Substance: CYCLOPENTOLATE HYDROCHLORIDE
  14. TRIAMCINOLONE ACETONIDE [Concomitant]
     Active Substance: TRIAMCINOLONE ACETONIDE
  15. FEXOFENADINE HYDROCHLORIDE [Concomitant]
     Active Substance: FEXOFENADINE HYDROCHLORIDE
  16. TIMOLOL MALEATE [Concomitant]
     Active Substance: TIMOLOL MALEATE
  17. ZIRGAN [Concomitant]
     Active Substance: GANCICLOVIR
  18. HYDROXYZINE HYDROCHLORIDE [Concomitant]
     Active Substance: HYDROXYZINE HYDROCHLORIDE
  19. GABAPENTIN [Concomitant]
     Active Substance: GABAPENTIN
  20. DORZOLAMIDE\TIMOLOL [Concomitant]
     Active Substance: DORZOLAMIDE\TIMOLOL
  21. MOXIFLOXACIN [Concomitant]
     Active Substance: MOXIFLOXACIN
  22. BUDESONIDE\FORMOTEROL FUMARATE [Concomitant]
     Active Substance: BUDESONIDE\FORMOTEROL FUMARATE
  23. ASPIRIN [Concomitant]
     Active Substance: ASPIRIN
  24. ESCITALOPRAM OXALATE [Concomitant]
     Active Substance: ESCITALOPRAM OXALATE
  25. POLYMYXIN B SULFATE;TRIMETHOPRIM [Concomitant]

REACTIONS (2)
  - Lacrimation increased [Unknown]
  - Therapy interrupted [Not Recovered/Not Resolved]
